FAERS Safety Report 8862584 (Version 3)
Quarter: 2012Q4

REPORT INFORMATION
  Report Type: 
  Country: MX (occurrence: MX)
  Receive Date: 20121026
  Receipt Date: 20121107
  Transmission Date: 20130627
  Serious: Yes (Other)
  Sender: FDA-Public Use
  Company Number: MX-JNJFOC-20121013895

PATIENT
  Sex: Female

DRUGS (7)
  1. DOXORUBICIN HYDROCHLORIDE (DOXIL) [Suspect]
     Indication: ACUTE LEUKAEMIA
     Route: 042
  2. ADRIAMYCIN [Suspect]
     Indication: ACUTE LEUKAEMIA
     Route: 065
  3. CYCLOPHOSPHAMIDE [Suspect]
     Indication: ACUTE LEUKAEMIA
     Route: 065
  4. VINCRISTINE [Suspect]
     Indication: ACUTE LEUKAEMIA
     Route: 065
  5. PREDNISONE [Suspect]
     Indication: ACUTE LEUKAEMIA
     Route: 065
  6. CYTARABINE [Suspect]
     Indication: ACUTE LEUKAEMIA
     Route: 065
  7. UNSPECIFIED DRUG [Suspect]
     Indication: ACUTE LEUKAEMIA
     Route: 065

REACTIONS (3)
  - Abortion spontaneous [Not Recovered/Not Resolved]
  - Exposure during pregnancy [Unknown]
  - Off label use [Unknown]
